FAERS Safety Report 4284108-X (Version None)
Quarter: 2004Q1

REPORT INFORMATION
  Report Type: 
  Country: None (occurrence: None)
  Receive Date: 20040130
  Receipt Date: 20040116
  Transmission Date: 20041129
  Serious: Yes (Hospitalization)
  Sender: FDA-Public Use
  Company Number: 2004UW01089

PATIENT
  Age: 39 Year
  Sex: Male
  Weight: 86.1834 kg

DRUGS (1)
  1. PRILOSEC [Suspect]
     Indication: DYSPEPSIA
     Dosage: 1 DF QD PO
     Route: 048
     Dates: start: 20031128, end: 20031212

REACTIONS (5)
  - DIABETES MELLITUS INSULIN-DEPENDENT [None]
  - FUNGAL INFECTION [None]
  - PANCREATIC DISORDER [None]
  - URINARY TRACT INFECTION [None]
  - WEIGHT DECREASED [None]
